FAERS Safety Report 23104221 (Version 1)
Quarter: 2023Q4

REPORT INFORMATION
  Report Type: Spontaneous
  Country: US (occurrence: None)
  Receive Date: 20231024
  Receipt Date: 20231024
  Transmission Date: 20240110
  Serious: Yes (unspecified)
  Sender: FDA-Public Use
  Company Number: None

PATIENT
  Age: 36 Year
  Sex: Female
  Weight: 86.85 kg

DRUGS (2)
  1. BENLYSTA [Suspect]
     Active Substance: BELIMUMAB
     Indication: Systemic lupus erythematosus
     Dosage: OTHER FREQUENCY : EVERY 28 DAYS;?
     Route: 041
     Dates: start: 20230815
  2. BENLYSTA [Suspect]
     Active Substance: BELIMUMAB
     Indication: Systemic lupus erythematosus
     Dosage: OTHER FREQUENCY : EVERY 28 DAYS;?
     Route: 041
     Dates: start: 20230815

REACTIONS (6)
  - Nasal congestion [None]
  - Eye pruritus [None]
  - Infusion related reaction [None]
  - Tearfulness [None]
  - Increased upper airway secretion [None]
  - Therapy interrupted [None]

NARRATIVE: CASE EVENT DATE: 20231024
